FAERS Safety Report 9501413 (Version 2)
Quarter: 2013Q4

REPORT INFORMATION
  Report Type: Spontaneous
  Country: CA (occurrence: CA)
  Receive Date: 20130905
  Receipt Date: 20131218
  Transmission Date: 20140711
  Serious: Yes (Hospitalization)
  Sender: FDA-Public Use
  Company Number: CA-GLAXOSMITHKLINE-A1003422A

PATIENT
  Sex: Female

DRUGS (6)
  1. TYKERB [Suspect]
     Indication: BREAST CANCER METASTATIC
     Dosage: 1250MG PER DAY
     Route: 048
     Dates: start: 20110916
  2. XELODA [Suspect]
     Indication: PRODUCT USED FOR UNKNOWN INDICATION
     Dosage: 1500MG TWICE PER DAY
     Route: 048
  3. ACETAMINOPHEN [Concomitant]
  4. POLYSPORIN [Concomitant]
  5. MOISTUREL CREAM [Concomitant]
  6. BAG BALM [Concomitant]

REACTIONS (7)
  - Dry skin [Unknown]
  - Palmar-plantar erythrodysaesthesia syndrome [Not Recovered/Not Resolved]
  - Skin fissures [Unknown]
  - Skin haemorrhage [Unknown]
  - Pain of skin [Unknown]
  - Surgery [Unknown]
  - Malignant neoplasm progression [Unknown]
